FAERS Safety Report 6655714-X (Version None)
Quarter: 2010Q1

REPORT INFORMATION
  Report Type: 
  Country: None (occurrence: None)
  Receive Date: 20100329
  Receipt Date: 20100325
  Transmission Date: 20100710
  Serious: Yes (Death, Hospitalization)
  Sender: FDA-Public Use
  Company Number: FR-AMGEN-UK290067

PATIENT
  Sex: Female

DRUGS (13)
  1. PANITUMUMAB [Suspect]
     Indication: COLORECTAL CANCER
     Route: 042
     Dates: start: 20080129, end: 20080617
  2. LEVOTHYROX [Concomitant]
     Route: 048
     Dates: start: 20000101, end: 20080624
  3. POLARAMINE [Concomitant]
     Route: 042
     Dates: start: 20080129, end: 20080624
  4. DEXAMETHASONE SODIUM PHOSPHATE [Concomitant]
     Route: 042
     Dates: start: 20080129, end: 20080624
  5. ATROPINE [Concomitant]
     Route: 058
     Dates: start: 20080129, end: 20080624
  6. ZOPHREN [Concomitant]
     Route: 042
     Dates: start: 20080129, end: 20080624
  7. LANSOYL [Concomitant]
     Route: 048
     Dates: start: 20080103, end: 20080624
  8. DOXYCYCLINE [Concomitant]
     Route: 048
     Dates: start: 20080226, end: 20080624
  9. VOGALENE [Concomitant]
     Route: 048
     Dates: start: 20080325, end: 20080624
  10. PRIMPERAN INJ [Concomitant]
     Dates: start: 20080311, end: 20080624
  11. FORLAX [Concomitant]
     Route: 048
     Dates: start: 20080619, end: 20090619
  12. UNSPECIFIED MEDICATION [Concomitant]
     Route: 061
     Dates: start: 20080226, end: 20080624
  13. ERYTHROMYCIN [Concomitant]
     Route: 061
     Dates: start: 20080226, end: 20080624

REACTIONS (1)
  - VENA CAVA THROMBOSIS [None]
